FAERS Safety Report 19504514 (Version 1)
Quarter: 2021Q3

REPORT INFORMATION
  Report Type: Spontaneous
  Country: US (occurrence: US)
  Receive Date: 20210707
  Receipt Date: 20210707
  Transmission Date: 20211014
  Serious: Yes (Hospitalization)
  Sender: FDA-Public Use
  Company Number: US-ROCHE-2860969

PATIENT
  Sex: Female
  Weight: 74.91 kg

DRUGS (11)
  1. CHLORTHALIDONE. [Concomitant]
     Active Substance: CHLORTHALIDONE
     Route: 048
     Dates: start: 20210629
  2. ACTEMRA [Suspect]
     Active Substance: TOCILIZUMAB
     Route: 058
     Dates: start: 20210105
  3. ACTEMRA [Suspect]
     Active Substance: TOCILIZUMAB
  4. ACTEMRA [Suspect]
     Active Substance: TOCILIZUMAB
  5. ACTEMRA [Suspect]
     Active Substance: TOCILIZUMAB
     Indication: GIANT CELL ARTERITIS
     Dosage: 162 MG/0.9 ML
     Route: 058
  6. ACTEMRA [Suspect]
     Active Substance: TOCILIZUMAB
  7. PREDNISONE. [Concomitant]
     Active Substance: PREDNISONE
     Route: 048
     Dates: start: 20201230
  8. LORATADINE. [Concomitant]
     Active Substance: LORATADINE
     Route: 048
     Dates: start: 20210528, end: 20210629
  9. OMEPRAZOLE. [Concomitant]
     Active Substance: OMEPRAZOLE
     Route: 048
     Dates: start: 20201230
  10. ACTEMRA [Suspect]
     Active Substance: TOCILIZUMAB
  11. VITAMIN D3 [Concomitant]
     Active Substance: CHOLECALCIFEROL
     Route: 048
     Dates: start: 20210629

REACTIONS (4)
  - Depression [Not Recovered/Not Resolved]
  - Joint swelling [Not Recovered/Not Resolved]
  - Cartilage injury [Not Recovered/Not Resolved]
  - Chest pain [Unknown]
